FAERS Safety Report 21360822 (Version 1)
Quarter: 2022Q3

REPORT INFORMATION
  Report Type: Report from Study
  Country: US (occurrence: US)
  Receive Date: 20220921
  Receipt Date: 20220921
  Transmission Date: 20221027
  Serious: Yes (Other)
  Sender: FDA-Public Use
  Company Number: US-GILEAD-2022-0598581

PATIENT
  Age: 41 Year
  Sex: Female

DRUGS (8)
  1. EMTRICITABINE [Suspect]
     Active Substance: EMTRICITABINE
     Indication: HIV infection
     Dosage: 200 MG
     Route: 065
  2. TENOFOVIR DISOPROXIL FUMARATE [Suspect]
     Active Substance: TENOFOVIR DISOPROXIL FUMARATE
     Indication: HIV infection
     Dosage: 300 MG
     Route: 065
  3. RIFAMPIN [Concomitant]
     Active Substance: RIFAMPIN
  4. RIFABUTIN [Concomitant]
     Active Substance: RIFABUTIN
  5. DOLUTEGRAVIR [Concomitant]
     Active Substance: DOLUTEGRAVIR
  6. ISONIAZID [Concomitant]
     Active Substance: ISONIAZID
  7. PYRAZINAMIDE [Concomitant]
     Active Substance: PYRAZINAMIDE
  8. ETHAMBUTOL [Concomitant]
     Active Substance: ETHAMBUTOL HYDROCHLORIDE

REACTIONS (1)
  - Immune reconstitution inflammatory syndrome [Unknown]
